FAERS Safety Report 7290150-7 (Version None)
Quarter: 2011Q1

REPORT INFORMATION
  Report Type: 
  Country: None (occurrence: None)
  Receive Date: 20110209
  Receipt Date: 20110209
  Transmission Date: 20110831
  Serious: Yes (Other)
  Sender: FDA-Public Use
  Company Number: None

PATIENT
  Age: 4 Year
  Sex: Female
  Weight: 13.3 kg

DRUGS (2)
  1. PRIVIGEN [Suspect]
  2. PRIVIGEN [Suspect]
     Dosage: 6.5G ONCE IV
     Route: 042
     Dates: start: 20110114, end: 20110114

REACTIONS (2)
  - NAUSEA [None]
  - VOMITING [None]
